FAERS Safety Report 6238197-3 (Version None)
Quarter: 2009Q2

REPORT INFORMATION
  Report Type: 
  Country: None (occurrence: None)
  Receive Date: 20090622
  Receipt Date: 20090610
  Transmission Date: 20091009
  Serious: Yes (Hospitalization)
  Sender: FDA-Public Use
  Company Number: PL-MEDIMMUNE-MEDI-0008527

PATIENT
  Sex: Female
  Weight: 5.2 kg

DRUGS (3)
  1. SYNAGIS [Suspect]
     Indication: BRONCHOPULMONARY DYSPLASIA
     Route: 030
     Dates: start: 20090226, end: 20090226
  2. SYNAGIS [Suspect]
     Route: 030
     Dates: start: 20090325
  3. SYNAGIS [Suspect]
     Route: 030
     Dates: start: 20090429

REACTIONS (3)
  - BRONCHITIS [None]
  - BRONCHOPULMONARY DYSPLASIA [None]
  - RESPIRATORY DISORDER [None]
